FAERS Safety Report 7155790-4 (Version None)
Quarter: 2010Q4

REPORT INFORMATION
  Report Type: 
  Country: None (occurrence: None)
  Receive Date: 20101214
  Receipt Date: 20101129
  Transmission Date: 20110411
  Serious: No
  Sender: FDA-Public Use
  Company Number: US-B.I. PHARMACEUTICALS,INC./RIDGEFIELD-2010-BP-13598BP

PATIENT
  Sex: Female

DRUGS (3)
  1. COMBIVENT [Suspect]
     Indication: EMPHYSEMA
     Dates: start: 20050101, end: 20050101
  2. COMBIVENT [Suspect]
     Dates: start: 20100801
  3. OXYGEN [Concomitant]
     Indication: EMPHYSEMA

REACTIONS (2)
  - TINNITUS [None]
  - TONGUE ULCERATION [None]
